FAERS Safety Report 22314792 (Version 1)
Quarter: 2023Q2

REPORT INFORMATION
  Report Type: Spontaneous
  Country: US (occurrence: None)
  Receive Date: 20230511
  Receipt Date: 20230511
  Transmission Date: 20230721
  Serious: Yes (Disabling)
  Sender: FDA-Public Use
  Company Number: None

PATIENT
  Age: 34 Year
  Sex: Female

DRUGS (7)
  1. GUANFACINE [Suspect]
     Active Substance: GUANFACINE
     Indication: Attention deficit hyperactivity disorder
     Dosage: 1 TABLET AT BEDTIME ORAL
     Route: 048
     Dates: start: 20230430, end: 20230503
  2. IBUPROFEN [Concomitant]
  3. LORATADINE [Concomitant]
     Active Substance: LORATADINE
  4. LAMOTRIGINE [Concomitant]
     Active Substance: LAMOTRIGINE
  5. BUSPIRONE [Concomitant]
     Active Substance: BUSPIRONE HYDROCHLORIDE
  6. HYDROXYZINE HYDROCHLORIDE [Concomitant]
     Active Substance: HYDROXYZINE HYDROCHLORIDE
  7. TRAZODONE [Concomitant]
     Active Substance: TRAZODONE HYDROCHLORIDE

REACTIONS (5)
  - Vitreous floaters [None]
  - Nausea [None]
  - Migraine [None]
  - Hypotension [None]
  - Intraocular pressure decreased [None]

NARRATIVE: CASE EVENT DATE: 20230501
